FAERS Safety Report 25881279 (Version 1)
Quarter: 2025Q4

REPORT INFORMATION
  Report Type: Spontaneous
  Country: RU (occurrence: RU)
  Receive Date: 20251004
  Receipt Date: 20251004
  Transmission Date: 20260118
  Serious: Yes (Other)
  Sender: SERVIER
  Company Number: RU-SERVIER-S25014065

PATIENT

DRUGS (1)
  1. IVOSIDENIB [Suspect]
     Active Substance: IVOSIDENIB
     Indication: Cholangiocarcinoma
     Dosage: UNK
     Route: 048

REACTIONS (1)
  - Cholangitis [Unknown]

NARRATIVE: CASE EVENT DATE: 20240101
